FAERS Safety Report 5501472-1 (Version None)
Quarter: 2007Q4

REPORT INFORMATION
  Report Type: 
  Country: None (occurrence: None)
  Receive Date: 20071023
  Receipt Date: 20060808
  Transmission Date: 20080405
  Serious: Yes (Other)
  Sender: FDA-Public Use
  Company Number: 29584

PATIENT
  Age: 16 Year
  Sex: Male
  Weight: 46 kg

DRUGS (5)
  1. CYTARABINE [Suspect]
     Indication: ACUTE MYELOID LEUKAEMIA
     Dosage: 4.8G IV/DAYS 1 AND 2 AND 8 AN
     Route: 042
     Dates: start: 20060721, end: 20060723
  2. ASPARAGINASE [Concomitant]
  3. DEXAMETHASONE TAB [Concomitant]
  4. DEX IV [Concomitant]
  5. ZOFRAN [Concomitant]

REACTIONS (1)
  - CONJUNCTIVITIS [None]
